FAERS Safety Report 10214024 (Version 1)
Quarter: 2014Q2

REPORT INFORMATION
  Report Type: Spontaneous
  Country: US (occurrence: US)
  Receive Date: 20140603
  Receipt Date: 20140603
  Transmission Date: 20141212
  Serious: Yes (Other)
  Sender: FDA-Public Use
  Company Number: US-ASTRAZENECA-2014SE36144

PATIENT
  Age: 27 Year
  Sex: Female

DRUGS (5)
  1. QUETIAPINE [Suspect]
     Indication: AFFECTIVE DISORDER
     Route: 048
  2. ARIPIPRAZOLE [Concomitant]
     Indication: HALLUCINATION, AUDITORY
  3. ARIPIPRAZOLE [Concomitant]
     Indication: HALLUCINATION, AUDITORY
  4. CITALOPRAM [Concomitant]
     Indication: DEPRESSED MOOD
  5. CITALOPRAM [Concomitant]
     Indication: DEPRESSED MOOD

REACTIONS (3)
  - Syncope [Recovered/Resolved]
  - Hypotension [Recovered/Resolved]
  - Heart rate decreased [Recovered/Resolved]
